FAERS Safety Report 24658572 (Version 1)
Quarter: 2024Q4

REPORT INFORMATION
  Report Type: Spontaneous
  Country: ES (occurrence: ES)
  Receive Date: 20241125
  Receipt Date: 20241125
  Transmission Date: 20250114
  Serious: Yes (Other)
  Sender: MYLAN
  Company Number: ES-PFIZER INC-202400245804

PATIENT
  Age: 60 Year
  Sex: Female

DRUGS (37)
  1. TIGECYCLINE [Suspect]
     Active Substance: TIGECYCLINE
     Indication: Eye infection bacterial
     Dosage: 50 MILLIGRAM, BID, 100 MG QD
     Route: 042
  2. TIGECYCLINE [Suspect]
     Active Substance: TIGECYCLINE
     Indication: Mycobacterium abscessus infection
  3. TIGECYCLINE [Suspect]
     Active Substance: TIGECYCLINE
     Indication: Eye disorder
  4. CEFTAZIDIME [Suspect]
     Active Substance: CEFTAZIDIME
     Indication: Achromobacter infection
     Dosage: UNK
     Route: 042
  5. DEXAMETHASONE [Suspect]
     Active Substance: DEXAMETHASONE
     Indication: Mycobacterium abscessus infection
     Dosage: UNK (OPTHALMIC DROPS)
     Route: 047
  6. DEXAMETHASONE [Suspect]
     Active Substance: DEXAMETHASONE
     Indication: Eye disorder
  7. TOBRAMYCIN [Suspect]
     Active Substance: TOBRAMYCIN\TOBRAMYCIN SULFATE
     Indication: Mycobacterium abscessus infection
     Dosage: UNK (OPTHALMIC DROPS)
     Route: 047
  8. TOBRAMYCIN [Suspect]
     Active Substance: TOBRAMYCIN\TOBRAMYCIN SULFATE
     Indication: Eye disorder
  9. TRIAMCINOLONE [Suspect]
     Active Substance: TRIAMCINOLONE
     Indication: Mycobacterium abscessus infection
     Dosage: UNK (ADMINISTERED VIA INTRACAVITARY ROUTE)
     Route: 065
  10. TRIAMCINOLONE [Suspect]
     Active Substance: TRIAMCINOLONE
     Indication: Eye disorder
  11. BEDAQUILINE [Suspect]
     Active Substance: BEDAQUILINE
     Indication: Eye infection
     Dosage: UNK
     Route: 065
  12. BEDAQUILINE [Suspect]
     Active Substance: BEDAQUILINE
     Indication: Eye disorder
  13. BEDAQUILINE [Suspect]
     Active Substance: BEDAQUILINE
     Indication: Mycobacterium abscessus infection
  14. AMIKACIN [Concomitant]
     Active Substance: AMIKACIN
     Indication: Eye infection bacterial
     Dosage: 750 MILLIGRAM, 12.5 MG/KG
     Route: 042
  15. AMIKACIN [Concomitant]
     Active Substance: AMIKACIN
     Indication: Mycobacterium abscessus infection
  16. AMIKACIN [Concomitant]
     Active Substance: AMIKACIN
     Indication: Eye disorder
  17. AZITHROMYCIN [Concomitant]
     Active Substance: AZITHROMYCIN
     Indication: Eye infection bacterial
     Dosage: 500 MILLIGRAM
     Route: 048
  18. AZITHROMYCIN [Concomitant]
     Active Substance: AZITHROMYCIN
     Indication: Eye disorder
  19. IMIPENEM [Concomitant]
     Active Substance: IMIPENEM
     Indication: Eye infection bacterial
     Dosage: 1 GRAM, Q8H, 1 G, 3X/DAY
     Route: 042
  20. IMIPENEM [Concomitant]
     Active Substance: IMIPENEM
     Indication: Mycobacterium abscessus infection
  21. IMIPENEM [Concomitant]
     Active Substance: IMIPENEM
     Indication: Eye disorder
  22. DOXYCYCLINE [Concomitant]
     Active Substance: DOXYCYCLINE
     Indication: Mycobacterium abscessus infection
     Dosage: UNK
     Route: 065
  23. DOXYCYCLINE [Concomitant]
     Active Substance: DOXYCYCLINE
     Indication: Eye disorder
  24. AMOXICILLIN [Concomitant]
     Active Substance: AMOXICILLIN
     Indication: Mycobacterium abscessus infection
     Dosage: UNK
     Route: 065
  25. AMOXICILLIN [Concomitant]
     Active Substance: AMOXICILLIN
     Indication: Eye disorder
  26. COTRIMOXAZOLE [Concomitant]
     Active Substance: SULFAMETHOXAZOLE\TRIMETHOPRIM
     Indication: Mycobacterium abscessus infection
     Dosage: UNK
     Route: 065
  27. COTRIMOXAZOLE [Concomitant]
     Active Substance: SULFAMETHOXAZOLE\TRIMETHOPRIM
     Indication: Eye disorder
  28. LEVOFLOXACIN [Concomitant]
     Active Substance: LEVOFLOXACIN
     Indication: Mycobacterium abscessus infection
     Dosage: UNK
     Route: 065
  29. LEVOFLOXACIN [Concomitant]
     Active Substance: LEVOFLOXACIN
     Indication: Eye disorder
  30. MOXIFLOXACIN [Concomitant]
     Active Substance: MOXIFLOXACIN
     Indication: Eye disorder
     Dosage: UNK
     Route: 065
  31. MOXIFLOXACIN [Concomitant]
     Active Substance: MOXIFLOXACIN
     Indication: Mycobacterium abscessus infection
  32. LINEZOLID [Concomitant]
     Active Substance: LINEZOLID
     Indication: Eye disorder
     Dosage: 600 MILLIGRAM, BID
     Route: 065
  33. LINEZOLID [Concomitant]
     Active Substance: LINEZOLID
     Indication: Mycobacterium abscessus infection
  34. RIFABUTIN [Concomitant]
     Active Substance: RIFABUTIN
     Indication: Mycobacterium abscessus infection
     Dosage: 300 MILLIGRAM, QD
     Route: 065
  35. RIFABUTIN [Concomitant]
     Active Substance: RIFABUTIN
     Indication: Eye disorder
  36. CEFOXITIN [Concomitant]
     Active Substance: CEFOXITIN SODIUM
     Indication: Mycobacterium abscessus infection
     Dosage: 2 GRAM, Q8H
     Route: 065
  37. CEFOXITIN [Concomitant]
     Active Substance: CEFOXITIN SODIUM
     Indication: Eye disorder

REACTIONS (4)
  - Hepatitis [Unknown]
  - Drug ineffective [Unknown]
  - Dyspepsia [Unknown]
  - Off label use [Unknown]
